FAERS Safety Report 11054582 (Version 1)
Quarter: 2015Q2

REPORT INFORMATION
  Report Type: Spontaneous
  Country: CA (occurrence: None)
  Receive Date: 20150420
  Receipt Date: 20150420
  Transmission Date: 20150821
  Serious: Yes (Hospitalization)
  Sender: FDA-Public Use
  Company Number: FK201501769

PATIENT
  Age: 39 Year
  Sex: Male
  Weight: 131 kg

DRUGS (10)
  1. VANCOMYCIN HYDROCHLORIDE. [Suspect]
     Active Substance: VANCOMYCIN HYDROCHLORIDE
     Indication: CELLULITIS
     Route: 042
  2. FLAMAZINE CREAM  1% (SILVAZINE) [Concomitant]
  3. DIPHENHYDRAMINE [Concomitant]
     Active Substance: DIPHENHYDRAMINE
  4. HYDROMORPHONE [Concomitant]
     Active Substance: HYDROMORPHONE
  5. ZOPICLONE [Concomitant]
     Active Substance: ZOPICLONE
  6. PEG 3350 (MACROGOL 3350) [Concomitant]
  7. ENOXAPARIN [Concomitant]
     Active Substance: ENOXAPARIN
  8. HEPARIN LOCK FLUSH SOLUTION [Concomitant]
  9. CLINDAMYCIN [Concomitant]
     Active Substance: CLINDAMYCIN\CLINDAMYCIN PHOSPHATE
  10. ACETAMINOPHEN (PARACETAMOL) [Concomitant]
     Active Substance: ACETAMINOPHEN

REACTIONS (5)
  - Erythema multiforme [None]
  - Mucosal erosion [None]
  - Lip pain [None]
  - Pain in extremity [None]
  - Lymphoedema [None]
